FAERS Safety Report 23850146 (Version 2)
Quarter: 2024Q2

REPORT INFORMATION
  Report Type: Spontaneous
  Country: GB (occurrence: GB)
  Receive Date: 20240513
  Receipt Date: 20240529
  Transmission Date: 20240716
  Serious: Yes (Other)
  Sender: FDA-Public Use
  Company Number: None

PATIENT
  Sex: Male
  Weight: 94 kg

DRUGS (10)
  1. GABAPENTIN [Suspect]
     Active Substance: GABAPENTIN
     Dosage: TIME INTERVAL: 0.33333333 DAYS
     Route: 065
     Dates: start: 20240425
  2. FINASTERIDE [Concomitant]
     Active Substance: FINASTERIDE
     Dates: start: 20230927
  3. ATORVASTATIN [Concomitant]
     Active Substance: ATORVASTATIN
     Dates: start: 20230927
  4. LANSOPRAZOLE [Concomitant]
     Active Substance: LANSOPRAZOLE
     Dates: start: 20230927
  5. YALTORMIN SR [Concomitant]
     Dates: start: 20230927
  6. MIRTAZAPINE [Concomitant]
     Active Substance: MIRTAZAPINE
     Dates: start: 20231211
  7. PREGABALIN [Concomitant]
     Active Substance: PREGABALIN
     Dosage: TIME INTERVAL: 0.33333333 DAYS
     Dates: start: 20240416
  8. DITROPAN [Concomitant]
     Active Substance: OXYBUTYNIN CHLORIDE
     Dosage: DURATION: 211 DAYS
     Dates: start: 20230927, end: 20240425
  9. CHOLESTYRAMINE [Concomitant]
     Active Substance: CHOLESTYRAMINE
     Dosage: USE AS DIRECTED
     Dates: start: 20231205
  10. HUMALOG [Concomitant]
     Active Substance: INSULIN LISPRO
     Dosage: USE AS DIRECTED
     Dates: start: 20230927

REACTIONS (2)
  - Rash [Recovering/Resolving]
  - Urticaria [Unknown]
